FAERS Safety Report 14798028 (Version 1)
Quarter: 2018Q2

REPORT INFORMATION
  Report Type: Spontaneous
  Country: US (occurrence: US)
  Receive Date: 20180424
  Receipt Date: 20180424
  Transmission Date: 20180711
  Serious: No
  Sender: FDA-Public Use
  Company Number: US-SHIRE-US201815506

PATIENT
  Age: 25 Year
  Sex: Female

DRUGS (2)
  1. FIRAZYR [Suspect]
     Active Substance: ICATIBANT ACETATE
     Indication: HEREDITARY ANGIOEDEMA
     Dosage: 30 ML, AS REQ^D
     Route: 058
     Dates: start: 20150331
  2. CINRYZE [Suspect]
     Active Substance: HUMAN C1-ESTERASE INHIBITOR
     Indication: HEREDITARY ANGIOEDEMA
     Dosage: ML
     Route: 065
     Dates: start: 20140627

REACTIONS (3)
  - Nasopharyngitis [Recovering/Resolving]
  - Lethargy [Recovering/Resolving]
  - Hereditary angioedema [Recovered/Resolved]

NARRATIVE: CASE EVENT DATE: 20180415
